FAERS Safety Report 17638093 (Version 2)
Quarter: 2020Q2

REPORT INFORMATION
  Report Type: Spontaneous
  Country: US (occurrence: US)
  Receive Date: 20200407
  Receipt Date: 20200427
  Transmission Date: 20200713
  Serious: No
  Sender: FDA-Public Use
  Company Number: US-BEH-2020115025

PATIENT
  Sex: Male

DRUGS (2)
  1. HIZENTRA [Suspect]
     Active Substance: HUMAN IMMUNOGLOBULIN G
     Indication: CHRONIC INFLAMMATORY DEMYELINATING POLYRADICULONEUROPATHY
  2. HIZENTRA [Suspect]
     Active Substance: HUMAN IMMUNOGLOBULIN G
     Indication: MYASTHENIA GRAVIS
     Dosage: 30 GRAM, QW
     Route: 058
     Dates: start: 20190906

REACTIONS (6)
  - Malaise [Unknown]
  - No adverse event [Unknown]
  - Incorrect product administration duration [Unknown]
  - Influenza [Unknown]
  - Product dose omission [Unknown]
  - Product use in unapproved indication [Unknown]
